FAERS Safety Report 15677266 (Version 2)
Quarter: 2021Q4

REPORT INFORMATION
  Report Type: Report from Study
  Country: US (occurrence: US)
  Receive Date: 20181130
  Receipt Date: 20211220
  Transmission Date: 20220303
  Serious: Yes (Hospitalization)
  Sender: FDA-Public Use
  Company Number: US-PFIZER INC-2018481076

PATIENT
  Age: 77 Year
  Sex: Female
  Weight: 62.6 kg

DRUGS (2)
  1. CRIZOTINIB [Suspect]
     Active Substance: CRIZOTINIB
     Indication: Lung adenocarcinoma
     Dosage: 250 MG, 2X/DAY ON A 28 DAYS CYCLE
     Route: 048
     Dates: start: 20180313
  2. CRIZOTINIB [Suspect]
     Active Substance: CRIZOTINIB
     Dosage: 200 MG, DAILY
     Route: 048
     Dates: start: 20180917, end: 20180917

REACTIONS (2)
  - Non-cardiac chest pain [Unknown]
  - Delirium [Unknown]

NARRATIVE: CASE EVENT DATE: 20180918
